FAERS Safety Report 10479820 (Version 4)
Quarter: 2014Q4

REPORT INFORMATION
  Report Type: Spontaneous
  Country: JP (occurrence: JP)
  Receive Date: 20140928
  Receipt Date: 20141104
  Transmission Date: 20150528
  Serious: Yes (Death, Hospitalization, Other)
  Sender: FDA-Public Use
  Company Number: JP-BRISTOL-MYERS SQUIBB COMPANY-21433040

PATIENT
  Age: 63 Year
  Sex: Male

DRUGS (9)
  1. ACINON [Concomitant]
     Active Substance: NIZATIDINE
     Route: 048
     Dates: end: 20140921
  2. BASEN [Suspect]
     Active Substance: VOGLIBOSE
     Route: 048
     Dates: end: 20140921
  3. FORXIGA [Suspect]
     Active Substance: DAPAGLIFLOZIN
     Indication: DIABETES MELLITUS
     Dosage: TABLET.
     Route: 048
     Dates: start: 20140702, end: 20140921
  4. TRICOR [Concomitant]
     Active Substance: FENOFIBRATE
     Route: 048
     Dates: end: 20140921
  5. MICARDIS [Concomitant]
     Active Substance: TELMISARTAN
     Route: 048
     Dates: end: 20140921
  6. AMARYL [Suspect]
     Active Substance: GLIMEPIRIDE
     Route: 048
     Dates: end: 20140917
  7. AMLODIPINE [Concomitant]
     Active Substance: AMLODIPINE BESYLATE
     Route: 048
     Dates: end: 20140921
  8. JANUVIA [Suspect]
     Active Substance: SITAGLIPTIN PHOSPHATE
     Route: 048
     Dates: end: 20140921
  9. ZYLORIC [Concomitant]
     Active Substance: ALLOPURINOL
     Route: 048
     Dates: end: 20140921

REACTIONS (6)
  - Cardiac failure acute [Fatal]
  - Angina pectoris [Unknown]
  - Dyspnoea [Unknown]
  - Loss of consciousness [Recovered/Resolved]
  - Musculoskeletal stiffness [Recovered/Resolved]
  - Cold sweat [Recovered/Resolved]

NARRATIVE: CASE EVENT DATE: 20140915
